FAERS Safety Report 15187463 (Version 2)
Quarter: 2019Q1

REPORT INFORMATION
  Report Type: Report from Study
  Country: US (occurrence: US)
  Receive Date: 20180723
  Receipt Date: 20190130
  Transmission Date: 20190417
  Serious: No
  Sender: FDA-Public Use
  Company Number: US-EXELIXIS-CABO-18012149

PATIENT
  Sex: Male

DRUGS (19)
  1. IBUPROFEN. [Concomitant]
     Active Substance: IBUPROFEN
  2. LISINOPRIL. [Concomitant]
     Active Substance: LISINOPRIL
  3. OXYCODONE [Concomitant]
     Active Substance: OXYCODONE
  4. METAMUCIL [Concomitant]
     Active Substance: PLANTAGO SEED
  5. AMLODIPINE [Concomitant]
     Active Substance: AMLODIPINE BESYLATE
  6. ZOFRAN [Concomitant]
     Active Substance: ONDANSETRON HYDROCHLORIDE
  7. CALCIUM [Concomitant]
     Active Substance: CALCIUM
  8. TURMERIC [Concomitant]
     Active Substance: HERBALS\TURMERIC
  9. OMEPRAZOLE. [Concomitant]
     Active Substance: OMEPRAZOLE
  10. MULTIVITAMINS W/FLUORIDE [Concomitant]
  11. TYLENOL [Concomitant]
     Active Substance: ACETAMINOPHEN
  12. RANITIDINE. [Concomitant]
     Active Substance: RANITIDINE
  13. PREDNISOLONE. [Concomitant]
     Active Substance: PREDNISOLONE
  14. VITAMIN D [Concomitant]
     Active Substance: CHOLECALCIFEROL
  15. COMETRIQ [Suspect]
     Active Substance: CABOZANTINIB S-MALATE
     Indication: PROSTATE CANCER
     Dosage: 60 MG, QD
     Route: 048
     Dates: start: 20171121
  16. MELATONIN [Concomitant]
     Active Substance: MELATONIN
  17. MORPHINE [Concomitant]
     Active Substance: MORPHINE
  18. GLUCOSAMINE CHONDROITIN COMPLEX [Concomitant]
     Active Substance: CHONDROITIN SULFATE (BOVINE)\GLUCOSAMINE HYDROCHLORIDE
  19. ONDANSETRON [Concomitant]
     Active Substance: ONDANSETRON

REACTIONS (8)
  - Diarrhoea [Unknown]
  - Decreased appetite [Unknown]
  - Feeling cold [Unknown]
  - Off label use [Unknown]
  - Fatigue [Unknown]
  - Weight decreased [Unknown]
  - Muscle atrophy [Unknown]
  - Constipation [Unknown]
